FAERS Safety Report 8136977-0 (Version None)
Quarter: 2012Q1

REPORT INFORMATION
  Report Type: 
  Country: None (occurrence: None)
  Receive Date: 20120214
  Receipt Date: 20120206
  Transmission Date: 20120608
  Serious: Yes (Other)
  Sender: FDA-Public Use
  Company Number: US-ASTRAZENECA-2012SE08001

PATIENT
  Age: 61 Year
  Sex: Female
  Weight: 68 kg

DRUGS (6)
  1. ZYRTEC [Concomitant]
     Indication: SINUSITIS
  2. NEXIUM [Suspect]
     Indication: GASTROOESOPHAGEAL REFLUX DISEASE
     Route: 048
  3. PRILOSEC [Concomitant]
  4. CALCIUM [Concomitant]
  5. ACIFEX [Concomitant]
  6. TWI VITAMINS [Concomitant]
     Indication: MACULAR DEGENERATION

REACTIONS (3)
  - DYSPHAGIA [None]
  - HIATUS HERNIA [None]
  - MACULAR DEGENERATION [None]
